FAERS Safety Report 24587375 (Version 1)
Quarter: 2024Q4

REPORT INFORMATION
  Report Type: Spontaneous
  Country: IT (occurrence: IT)
  Receive Date: 20241107
  Receipt Date: 20241107
  Transmission Date: 20250115
  Serious: Yes (Other)
  Sender: ROCHE
  Company Number: IT-ROCHE-2860890

PATIENT
  Age: 71 Year
  Sex: Female

DRUGS (8)
  1. ERLOTINIB [Suspect]
     Active Substance: ERLOTINIB
     Indication: Non-small cell lung cancer
     Route: 048
     Dates: start: 201808
  2. ERLOTINIB [Suspect]
     Active Substance: ERLOTINIB
     Route: 065
     Dates: start: 201901, end: 201903
  3. OSIMERTINIB [Concomitant]
     Active Substance: OSIMERTINIB
     Indication: Lung adenocarcinoma
     Dosage: LAST DOSE ADMINISTERED ON /JUN/2019.
     Route: 048
     Dates: start: 201903
  4. CARBOPLATIN [Concomitant]
     Active Substance: CARBOPLATIN
     Dates: start: 201906, end: 201911
  5. GEMCITABINE [Concomitant]
     Active Substance: GEMCITABINE
     Indication: Chemotherapy
  6. MINOCYCLINE [Concomitant]
     Active Substance: MINOCYCLINE HYDROCHLORIDE
     Indication: Subacute cutaneous lupus erythematosus
  7. PREDNISONE [Concomitant]
     Active Substance: PREDNISONE
     Indication: Subacute cutaneous lupus erythematosus
  8. OSIMERTINIB [Concomitant]
     Active Substance: OSIMERTINIB

REACTIONS (2)
  - Cutaneous lupus erythematosus [Recovering/Resolving]
  - Drug resistance [Unknown]
